FAERS Safety Report 19407201 (Version 1)
Quarter: 2021Q2

REPORT INFORMATION
  Report Type: Report from Study
  Country: CO (occurrence: CO)
  Receive Date: 20210611
  Receipt Date: 20210611
  Transmission Date: 20210717
  Serious: Yes (Hospitalization)
  Sender: FDA-Public Use
  Company Number: CO-EMD SERONO-9243230

PATIENT
  Age: 15 Year
  Sex: Male

DRUGS (4)
  1. SAIZEN [Suspect]
     Active Substance: SOMATROPIN
     Indication: GROWTH HORMONE DEFICIENCY
     Route: 058
     Dates: start: 20210313, end: 202105
  2. CLARITHROMYCIN. [Concomitant]
     Active Substance: CLARITHROMYCIN
     Indication: PRODUCT USED FOR UNKNOWN INDICATION
  3. ESOMEPRAZOLE. [Concomitant]
     Active Substance: ESOMEPRAZOLE MAGNESIUM
     Indication: PRODUCT USED FOR UNKNOWN INDICATION
  4. AMOXICILLIN. [Concomitant]
     Active Substance: AMOXICILLIN
     Indication: PRODUCT USED FOR UNKNOWN INDICATION

REACTIONS (2)
  - Internal haemorrhage [Recovered/Resolved]
  - Gastritis [Recovered/Resolved]

NARRATIVE: CASE EVENT DATE: 20210516
